FAERS Safety Report 21389991 (Version 4)
Quarter: 2024Q4

REPORT INFORMATION
  Report Type: Report from Study
  Country: KR (occurrence: KR)
  Receive Date: 20220929
  Receipt Date: 20241028
  Transmission Date: 20250115
  Serious: Yes (Other)
  Sender: NOVARTIS
  Company Number: KR-NOVARTISPH-NVSC2022KR219698

PATIENT
  Sex: Male
  Weight: 63.1 kg

DRUGS (11)
  1. RYDAPT [Suspect]
     Active Substance: MIDOSTAURIN
     Indication: Acute myeloid leukaemia
     Dosage: 50 MG, BID
     Route: 048
     Dates: start: 20220707, end: 20220711
  2. CYTARABINE [Concomitant]
     Active Substance: CYTARABINE
     Indication: Acute myeloid leukaemia
     Dosage: 340 MG, Q24H
     Route: 042
     Dates: start: 20220630, end: 20220706
  3. CYTARABINE [Concomitant]
     Active Substance: CYTARABINE
     Dosage: 4800 MG
     Route: 042
     Dates: start: 20220813, end: 20220813
  4. CYTARABINE [Concomitant]
     Active Substance: CYTARABINE
     Dosage: 4800 MG
     Route: 042
     Dates: start: 20220815, end: 20220815
  5. CYTARABINE [Concomitant]
     Active Substance: CYTARABINE
     Dosage: 4800 MG
     Route: 042
     Dates: start: 20220817, end: 20220817
  6. DAUNORUBICIN HYDROCHLORIDE [Concomitant]
     Active Substance: DAUNORUBICIN HYDROCHLORIDE
     Indication: Acute myeloid leukaemia
     Dosage: 100 MG, Q24H
     Route: 042
     Dates: start: 20220630, end: 20220702
  7. MEROPENEM [Concomitant]
     Active Substance: MEROPENEM
     Indication: Pneumonia
     Dosage: 3 G
     Route: 042
     Dates: start: 20220701, end: 20220717
  8. SULFAMETHOXAZOLE\TRIMETHOPRIM [Concomitant]
     Active Substance: SULFAMETHOXAZOLE\TRIMETHOPRIM
     Indication: Pneumonia
     Dosage: 1 DOSAGE FORM
     Route: 048
     Dates: start: 20220702
  9. Aclova [Concomitant]
     Indication: Pneumonia
     Dosage: 400 MG
     Route: 048
     Dates: start: 20220702
  10. LEVOFLOXACIN [Concomitant]
     Active Substance: LEVOFLOXACIN
     Indication: Pneumonia
     Dosage: 750 MG
     Route: 042
     Dates: start: 20220705, end: 20220714
  11. AMBISOME [Concomitant]
     Active Substance: AMPHOTERICIN B
     Indication: Pneumonia
     Dosage: 3 MG/KG
     Route: 042
     Dates: start: 20220705, end: 20220712

REACTIONS (1)
  - Hyperbilirubinaemia [Recovered/Resolved]

NARRATIVE: CASE EVENT DATE: 20220711
